FAERS Safety Report 16290667 (Version 2)
Quarter: 2019Q3

REPORT INFORMATION
  Report Type: Spontaneous
  Country: DE (occurrence: DE)
  Receive Date: 20190509
  Receipt Date: 20190808
  Transmission Date: 20191004
  Serious: Yes (Hospitalization, Other)
  Sender: FDA-Public Use
  Company Number: DE-JNJFOC-20190509931

PATIENT
  Sex: Male
  Weight: 75 kg

DRUGS (2)
  1. RIVAROXABAN [Suspect]
     Active Substance: RIVAROXABAN
     Indication: PULMONARY EMBOLISM
     Dosage: DAILY DOSE 20 MG
     Route: 048
     Dates: start: 201810
  2. METOPROLOL. [Concomitant]
     Active Substance: METOPROLOL
     Indication: HYPERTENSION
     Dosage: DAILY DOSE 50 MG
     Route: 048
     Dates: start: 201810, end: 20190222

REACTIONS (7)
  - Pneumonia [Recovered/Resolved]
  - Hypertension [Recovered/Resolved]
  - Osteomyelitis bacterial [Recovering/Resolving]
  - Mastoiditis [Recovered/Resolved]
  - Osteitis [Recovering/Resolving]
  - Mastoiditis [Recovered/Resolved]
  - Epistaxis [Unknown]

NARRATIVE: CASE EVENT DATE: 20181119
